FAERS Safety Report 21753557 (Version 2)
Quarter: 2023Q1

REPORT INFORMATION
  Report Type: Report from Study
  Country: BR (occurrence: BR)
  Receive Date: 20221220
  Receipt Date: 20230303
  Transmission Date: 20230417
  Serious: No
  Sender: FDA-Public Use
  Company Number: BR-002147023-NVSC2022BR279389

PATIENT
  Age: 53 Year
  Sex: Female

DRUGS (4)
  1. KISQALI [Suspect]
     Active Substance: RIBOCICLIB
     Indication: Product used for unknown indication
     Dosage: 3 DOSAGE FORM, QD
     Route: 065
  2. KISQALI [Suspect]
     Active Substance: RIBOCICLIB
     Dosage: UNK
     Route: 065
     Dates: start: 20221112
  3. KISQALI [Suspect]
     Active Substance: RIBOCICLIB
     Dosage: UNK (IN USE)
     Route: 065
  4. LETROZOLE [Suspect]
     Active Substance: LETROZOLE
     Indication: Product used for unknown indication
     Dosage: UNK
     Route: 065

REACTIONS (10)
  - Decreased immune responsiveness [Unknown]
  - Dry throat [Unknown]
  - Haemoptysis [Recovered/Resolved]
  - Mucosal dryness [Unknown]
  - Hypersensitivity [Unknown]
  - Sensitive skin [Unknown]
  - Skin lesion [Unknown]
  - Dizziness [Unknown]
  - White blood cell count decreased [Unknown]
  - Pruritus [Unknown]

NARRATIVE: CASE EVENT DATE: 20221101
